FAERS Safety Report 25664316 (Version 1)
Quarter: 2025Q3

REPORT INFORMATION
  Report Type: Spontaneous
  Country: US (occurrence: None)
  Receive Date: 20250808
  Receipt Date: 20250808
  Transmission Date: 20251020
  Serious: Yes (Life-Threatening)
  Sender: FDA-CTU
  Company Number: None

PATIENT
  Age: 35 Year
  Sex: Male
  Weight: 63 kg

DRUGS (8)
  1. CEFTRIAXONE SODIUM [Suspect]
     Active Substance: CEFTRIAXONE SODIUM
     Indication: Urinary tract infection
     Route: 040
     Dates: start: 20250806, end: 20250806
  2. STERILE WATER FOR INJECTION [Suspect]
     Active Substance: WATER
     Indication: Urinary tract infection
     Dates: start: 20250806, end: 20250806
  3. Albuterol 0.5% nebulizer solution [Concomitant]
     Dates: start: 20250806, end: 20250806
  4. HYDROMORPHONE HYDROCHLORIDE [Concomitant]
     Active Substance: HYDROMORPHONE HYDROCHLORIDE
     Dates: start: 20250806, end: 20250806
  5. Ipratropium-albuterol 0.5-2.5 mg/3 mL nebulizer solution [Concomitant]
     Dates: start: 20250806, end: 20250806
  6. ONDANSETRON [Concomitant]
     Active Substance: ONDANSETRON
     Dates: start: 20250806, end: 20250806
  7. 0.9 % Sodium Chloride fluid bolus and flushes [Concomitant]
     Dates: start: 20250806, end: 20250806
  8. Iopamidol 76% injection [Concomitant]
     Dates: start: 20250806, end: 20250806

REACTIONS (14)
  - Infusion site pain [None]
  - Vomiting [None]
  - Cough [None]
  - Unresponsive to stimuli [None]
  - Seizure [None]
  - Hypoxia [None]
  - Cardiac arrest [None]
  - Bradycardia [None]
  - Presyncope [None]
  - Liver function test increased [None]
  - Hyperbilirubinaemia [None]
  - Lactic acidosis [None]
  - Leukocytosis [None]
  - Posturing [None]

NARRATIVE: CASE EVENT DATE: 20250806
